FAERS Safety Report 14517308 (Version 3)
Quarter: 2018Q1

REPORT INFORMATION
  Report Type: Spontaneous
  Country: GB (occurrence: GB)
  Receive Date: 20180212
  Receipt Date: 20180321
  Transmission Date: 20180509
  Serious: Yes (Hospitalization, Other)
  Sender: FDA-Public Use
  Company Number: GB-CONCORDIA PHARMACEUTICALS INC.-E2B_00009837

PATIENT
  Age: 78 Year
  Sex: Male

DRUGS (10)
  1. DEGARELIX [Concomitant]
     Active Substance: DEGARELIX
     Indication: PROSTATE CANCER
     Dosage: 80 MG, EVERY 4 WEEKS
     Route: 058
     Dates: start: 201708
  2. RISPERIDONE. [Concomitant]
     Active Substance: RISPERIDONE
     Indication: DEPRESSION
     Dosage: DOSAGE FORM: UNSPECIFIED
     Route: 048
  3. ZYTIGA [Suspect]
     Active Substance: ABIRATERONE ACETATE
     Indication: PROSTATE CANCER METASTATIC
     Route: 048
     Dates: start: 20171106, end: 20171220
  4. ATORVASTATIN [Concomitant]
     Active Substance: ATORVASTATIN
     Indication: HYPERCHOLESTEROLAEMIA
     Dosage: DOSAGE FORM: UNSPECIFIED
     Route: 048
  5. PREDNISOLONE. [Suspect]
     Active Substance: PREDNISOLONE
     Indication: PROSTATE CANCER METASTATIC
     Dosage: DOSAGE FORM: UNSPECIFIED
     Route: 048
     Dates: start: 20171106, end: 20171220
  6. CLOPIDOGREL [Concomitant]
     Active Substance: CLOPIDOGREL BISULFATE
     Indication: PERIPHERAL VASCULAR DISORDER
     Dosage: DOSAGE FORM: UNSPECIFIED
     Route: 048
  7. CITALOPRAM [Concomitant]
     Active Substance: CITALOPRAM HYDROBROMIDE
     Indication: DEPRESSION
     Dosage: DOSAGE FORM: UNSPECIFIED
     Route: 048
  8. INDAPAMIDE. [Interacting]
     Active Substance: INDAPAMIDE
     Indication: HYPERTENSION
     Dosage: DOSAGE FORM: UNSPECIFIED
     Route: 048
     Dates: end: 20171218
  9. AMLODIPINE [Concomitant]
     Active Substance: AMLODIPINE BESYLATE
     Indication: HYPERTENSION
     Dosage: DOSAGE FORM: UNSPECIFIED
     Route: 048
  10. ASPIRIN. [Concomitant]
     Active Substance: ASPIRIN
     Indication: PERIPHERAL VASCULAR DISORDER
     Dosage: DOSAGE FORM: UNSPECIFIED
     Route: 048

REACTIONS (3)
  - Drug interaction [Recovered/Resolved]
  - Hypokalaemia [Recovered/Resolved]
  - Infective exacerbation of chronic obstructive airways disease [Unknown]

NARRATIVE: CASE EVENT DATE: 201712
